FAERS Safety Report 15396801 (Version 1)
Quarter: 2018Q3

REPORT INFORMATION
  Report Type: Spontaneous
  Country: US (occurrence: US)
  Receive Date: 20180918
  Receipt Date: 20180918
  Transmission Date: 20181010
  Serious: Yes (Other)
  Sender: FDA-Public Use
  Company Number: US-SA-2018SA170029

PATIENT
  Age: 63 Year
  Sex: Female
  Weight: 86.63 kg

DRUGS (12)
  1. ESTRACE [Concomitant]
     Active Substance: ESTRADIOL
  2. PRAVASTATIN. [Concomitant]
     Active Substance: PRAVASTATIN
  3. LISINOPRIL. [Concomitant]
     Active Substance: LISINOPRIL
  4. TAXOTERE [Suspect]
     Active Substance: DOCETAXEL
     Indication: BREAST CANCER
     Dosage: UNK UNK, Q3W
     Route: 042
     Dates: start: 20141003, end: 20141003
  5. TAXOTERE [Suspect]
     Active Substance: DOCETAXEL
     Dosage: UNK
     Route: 042
     Dates: start: 20141231, end: 20141231
  6. CALTRATE WITH VITAMIN D [Concomitant]
     Active Substance: CALCIUM CARBONATE\CHOLECALCIFEROL
  7. VITAMIN C [ASCORBIC ACID] [Concomitant]
  8. ELAVIL [ALLOPURINOL] [Concomitant]
  9. ZANAFLEX [Concomitant]
     Active Substance: TIZANIDINE HYDROCHLORIDE
  10. NEXIUM [ESOMEPRAZOLE MAGNESIUM] [Concomitant]
  11. PEPCID COMPLETE [Concomitant]
     Active Substance: CALCIUM CARBONATE\FAMOTIDINE\MAGNESIUM HYDROXIDE
  12. CLARITINE [Concomitant]
     Active Substance: LORATADINE

REACTIONS (2)
  - Psychological trauma [Unknown]
  - Alopecia [Recovering/Resolving]

NARRATIVE: CASE EVENT DATE: 20150629
